FAERS Safety Report 21082148 (Version 1)
Quarter: 2022Q3

REPORT INFORMATION
  Report Type: Spontaneous
  Country: US (occurrence: US)
  Receive Date: 20220714
  Receipt Date: 20220714
  Transmission Date: 20221027
  Serious: No
  Sender: FDA-Public Use
  Company Number: US-009507513-2206USA005670

PATIENT
  Age: 56 Year
  Sex: Male

DRUGS (2)
  1. INTRON A [Suspect]
     Active Substance: INTERFERON ALFA-2B
     Indication: Ocular surface squamous neoplasia
     Dosage: 1 MILLION IU/ML, 4 TIMES DAILY
  2. FLUOROURACIL [Concomitant]
     Active Substance: FLUOROURACIL
     Indication: Ocular surface squamous neoplasia
     Dosage: 4 TIMES DAILY FOR 1 WEEK, FOLLOWED BY 3 WEEKS OF DRUG HOLIDAY

REACTIONS (2)
  - Incorrect route of product administration [Unknown]
  - Product use in unapproved indication [Unknown]
